FAERS Safety Report 22092690 (Version 1)
Quarter: 2023Q1

REPORT INFORMATION
  Report Type: Spontaneous
  Country: US (occurrence: None)
  Receive Date: 20230313
  Receipt Date: 20230313
  Transmission Date: 20230417
  Serious: Yes (Hospitalization, Other)
  Sender: FDA-Public Use
  Company Number: None

PATIENT
  Age: 26 Year
  Sex: Male

DRUGS (2)
  1. BACLOFEN [Suspect]
     Active Substance: BACLOFEN
     Indication: Withdrawal syndrome
     Route: 065
  2. 4-AMINO-3-PHENYLBUTYRIC ACID [Suspect]
     Active Substance: 4-AMINO-3-PHENYLBUTYRIC ACID
     Indication: Withdrawal syndrome
     Route: 065

REACTIONS (17)
  - Treatment failure [None]
  - Drug tolerance [None]
  - Therapy change [None]
  - Agitation [None]
  - Irritability [None]
  - Impatience [None]
  - Poor quality sleep [None]
  - Anxiety [None]
  - Restlessness [None]
  - Pain [None]
  - Skin burning sensation [None]
  - Drug dependence [None]
  - Social problem [None]
  - Occupational problem environmental [None]
  - Dependence [None]
  - Suicidal ideation [None]
  - Akathisia [None]
